FAERS Safety Report 5140707-4 (Version None)
Quarter: 2006Q4

REPORT INFORMATION
  Report Type: 
  Country: None (occurrence: None)
  Receive Date: 20061025
  Receipt Date: 20061012
  Transmission Date: 20070319
  Serious: Yes (Hospitalization)
  Sender: FDA-Public Use
  Company Number: 2006127460

PATIENT
  Age: 51 Year
  Sex: Female

DRUGS (2)
  1. PREDNISOLONE [Suspect]
     Indication: LUNG TRANSPLANT
  2. CYCLOSPORINE [Suspect]
     Indication: LUNG TRANSPLANT

REACTIONS (3)
  - BRONCHOPULMONARY ASPERGILLOSIS [None]
  - LUNG TRANSPLANT REJECTION [None]
  - TRACHEOBRONCHITIS [None]
